FAERS Safety Report 4453745-1 (Version None)
Quarter: 2004Q3

REPORT INFORMATION
  Report Type: 
  Country: None (occurrence: None)
  Receive Date: 20040920
  Receipt Date: 20040908
  Transmission Date: 20050211
  Serious: Yes (Death)
  Sender: FDA-Public Use
  Company Number: 200412713EU

PATIENT
  Age: 63 Year
  Sex: Male

DRUGS (7)
  1. DOCETAXEL [Suspect]
     Indication: LUNG NEOPLASM MALIGNANT
     Route: 042
     Dates: start: 20040827, end: 20040827
  2. CISPLATIN [Suspect]
     Indication: LUNG NEOPLASM MALIGNANT
     Route: 042
     Dates: start: 20040827, end: 20040827
  3. DURAGESIC [Concomitant]
     Indication: PAIN
     Route: 062
     Dates: start: 20040810
  4. SEVREDOL [Concomitant]
     Indication: PAIN
     Route: 048
     Dates: start: 20040810
  5. NEOBRUFEN [Concomitant]
     Indication: PAIN
     Route: 048
     Dates: start: 20040809
  6. ALDACTONE [Concomitant]
     Indication: DIURETIC THERAPY
     Route: 048
     Dates: start: 20040101
  7. EMEPROTON [Concomitant]
     Indication: GASTRIC DISORDER
     Route: 048
     Dates: start: 20040811

REACTIONS (7)
  - DEHYDRATION [None]
  - DEPRESSED LEVEL OF CONSCIOUSNESS [None]
  - DISORIENTATION [None]
  - GENERAL PHYSICAL HEALTH DETERIORATION [None]
  - HYPOCALCAEMIA [None]
  - RENAL FAILURE [None]
  - THROMBOCYTOPENIA [None]
